FAERS Safety Report 22193602 (Version 2)
Quarter: 2023Q2

REPORT INFORMATION
  Report Type: Spontaneous
  Country: US (occurrence: US)
  Receive Date: 20230410
  Receipt Date: 20230411
  Transmission Date: 20230721
  Serious: Yes (Other)
  Sender: FDA-Public Use
  Company Number: US-ALKERMES INC.-ALK-2023-001477

PATIENT
  Sex: Male

DRUGS (1)
  1. VIVITROL [Suspect]
     Active Substance: NALTREXONE
     Indication: Product used for unknown indication
     Dosage: 380 MILLIGRAM, QMO
     Route: 030

REACTIONS (4)
  - Injection site necrosis [Unknown]
  - Injection site reaction [Unknown]
  - Injection site abscess [Unknown]
  - Injection site paraesthesia [Unknown]
